FAERS Safety Report 6175047-8 (Version None)
Quarter: 2009Q2

REPORT INFORMATION
  Report Type: 
  Country: None (occurrence: None)
  Receive Date: 20090430
  Receipt Date: 20090416
  Transmission Date: 20091009
  Serious: Yes (Disabling, Other)
  Sender: FDA-Public Use
  Company Number: US-B.I. PHARMACEUTICALS,INC./RIDGEFIELD-2009-BP-04641BP

PATIENT
  Sex: Male
  Weight: 108.86 kg

DRUGS (9)
  1. SPIRIVA [Suspect]
  2. CHANTIX [Suspect]
     Indication: SMOKING CESSATION THERAPY
     Dosage: .5MG
     Route: 048
     Dates: start: 20090407, end: 20090414
  3. NEURONTIN [Suspect]
  4. REMERON [Concomitant]
  5. HYDROCODONE BITARTRATE [Concomitant]
  6. LORAZEPAM [Concomitant]
  7. AMITRIPTYLINE HCL [Concomitant]
  8. QUINAPRIL [Concomitant]
  9. PIOGLITAZONE [Concomitant]

REACTIONS (12)
  - ABNORMAL DREAMS [None]
  - ADVERSE DRUG REACTION [None]
  - DEPRESSION [None]
  - EMOTIONAL DISORDER [None]
  - HEAD INJURY [None]
  - INSOMNIA [None]
  - IRRITABILITY [None]
  - MENTAL DISORDER [None]
  - MIGRAINE [None]
  - NAUSEA [None]
  - SPINAL COLUMN STENOSIS [None]
  - TOOTH DISORDER [None]
